FAERS Safety Report 9161972 (Version 1)
Quarter: 2013Q1

REPORT INFORMATION
  Report Type: Spontaneous
  Country: TG (occurrence: TG)
  Receive Date: 20130314
  Receipt Date: 20130314
  Transmission Date: 20140127
  Serious: Yes (Other)
  Sender: FDA-Public Use
  Company Number: TG-JNJFOC-20130216484

PATIENT
  Sex: 0

DRUGS (1)
  1. DOXORUBICIN [Suspect]
     Indication: NEOPLASM
     Route: 042

REACTIONS (3)
  - Cardiotoxicity [Unknown]
  - Ejection fraction decreased [Unknown]
  - Pericardial effusion [Unknown]
